FAERS Safety Report 4759863-2 (Version None)
Quarter: 2005Q3

REPORT INFORMATION
  Report Type: 
  Country: None (occurrence: None)
  Receive Date: 20050831
  Receipt Date: 20050831
  Transmission Date: 20060218
  Serious: Yes (Hospitalization)
  Sender: FDA-Public Use
  Company Number: None

PATIENT
  Age: 16 Year
  Sex: Female

DRUGS (3)
  1. VALPROIC ACID  250 MG; 500 MG [Suspect]
     Indication: CONVULSION
     Dosage: 250 MG; 500 MG  AM;PM  PO
     Route: 048
  2. NEURONTIN [Concomitant]
  3. RISPERDAL [Concomitant]

REACTIONS (6)
  - CONVULSION [None]
  - DEPRESSED LEVEL OF CONSCIOUSNESS [None]
  - DROOLING [None]
  - DRUG LEVEL ABOVE THERAPEUTIC [None]
  - ELECTROENCEPHALOGRAM ABNORMAL [None]
  - PHYSICAL EXAMINATION ABNORMAL [None]
